FAERS Safety Report 7724808-X (Version None)
Quarter: 2011Q3

REPORT INFORMATION
  Report Type: 
  Country: None (occurrence: None)
  Receive Date: 20110829
  Receipt Date: 20110811
  Transmission Date: 20111222
  Serious: Yes (Hospitalization)
  Sender: FDA-Public Use
  Company Number: 2011MA011690

PATIENT
  Age: 74 Year
  Sex: Male

DRUGS (4)
  1. EMTRICITABINE [Suspect]
     Indication: ANTIRETROVIRAL THERAPY
  2. METFORMIN HYDROCHLORIDE [Suspect]
     Indication: TYPE 2 DIABETES MELLITUS
     Dosage: 850 MG;TID
  3. TENOFOVIR DISOPROXIL FUMARATE [Suspect]
     Indication: ANTIRETROVIRAL THERAPY
     Dosage: 300 MG;QD
  4. EFAVIRENZ [Suspect]
     Indication: ANTIRETROVIRAL THERAPY

REACTIONS (7)
  - DEHYDRATION [None]
  - RENAL FAILURE ACUTE [None]
  - HILAR LYMPHADENOPATHY [None]
  - TACHYPNOEA [None]
  - ABDOMINAL TENDERNESS [None]
  - CONTINUOUS HAEMODIAFILTRATION [None]
  - LACTIC ACIDOSIS [None]
